FAERS Safety Report 22241541 (Version 1)
Quarter: 2023Q2

REPORT INFORMATION
  Report Type: Spontaneous
  Country: IT (occurrence: IT)
  Receive Date: 20230421
  Receipt Date: 20230421
  Transmission Date: 20230721
  Serious: Yes (Other)
  Sender: FDA-Public Use
  Company Number: None

PATIENT
  Age: 68 Year
  Sex: Male

DRUGS (3)
  1. ENTRESTO [Suspect]
     Active Substance: SACUBITRIL\VALSARTAN
     Indication: Cardiac failure
     Dosage: 200 MG, Q24H (ENTRESTO 49/51 MG COMPRESSE RIVESTITE CON FILM, 2CP/DIE)
     Route: 048
     Dates: start: 20220329, end: 20221007
  2. PRAVASTATIN SODIUM [Concomitant]
     Active Substance: PRAVASTATIN SODIUM
     Indication: Hypercholesterolaemia
     Dosage: 20 MG, QD (APLACTIN 10 CPR 20 MG, 1 CP/DIE LA SERA)
     Route: 048
  3. LASIX [Concomitant]
     Active Substance: FUROSEMIDE
     Indication: Product used for unknown indication
     Dosage: 25 MG, Q24H (LASIX 30 CPR, 25 MG 1 CP/DIE)
     Route: 048
     Dates: start: 201407

REACTIONS (1)
  - Hypotensive crisis [Recovered/Resolved]

NARRATIVE: CASE EVENT DATE: 20221001
